FAERS Safety Report 19326848 (Version 1)
Quarter: 2021Q2

REPORT INFORMATION
  Report Type: Spontaneous
  Country: SE (occurrence: SE)
  Receive Date: 20210528
  Receipt Date: 20210528
  Transmission Date: 20210717
  Serious: Yes (Other)
  Sender: FDA-Public Use
  Company Number: SE-MYLANLABS-2021M1030943

PATIENT
  Sex: Male

DRUGS (2)
  1. LEPONEX [Suspect]
     Active Substance: CLOZAPINE
     Indication: PRODUCT USED FOR UNKNOWN INDICATION
     Dosage: 25 MILLIGRAM, QD
  2. LEPONEX [Suspect]
     Active Substance: CLOZAPINE
     Dosage: 100 MILLIGRAM, QD

REACTIONS (4)
  - Erectile dysfunction [Unknown]
  - Fatigue [Unknown]
  - Increased appetite [Unknown]
  - Weight increased [Unknown]
